FAERS Safety Report 5253728-8 (Version None)
Quarter: 2007Q1

REPORT INFORMATION
  Report Type: 
  Country: None (occurrence: None)
  Receive Date: 20070227
  Receipt Date: 20070212
  Transmission Date: 20070707
  Serious: Yes (Death, Hospitalization)
  Sender: FDA-Public Use
  Company Number: B0459186A

PATIENT
  Age: 62 Year
  Sex: Female

DRUGS (6)
  1. CO-TRIMOXAZOLE (FORMULATION UNKNOWN) (SULFAMETHOXAZOLE/TRIMETHO) [Suspect]
     Indication: UPPER RESPIRATORY TRACT INFECTION
  2. PHENOXYMETHYL PENICILLIN [Suspect]
  3. CEPHALEXIN [Suspect]
  4. TETRACYCLINE [Suspect]
  5. HEPARIN [Suspect]
     Indication: THROMBOSIS PROPHYLAXIS
     Dosage: 5000 UNIT TWICE PER DAY SUBCUTANEOUS
     Route: 058
  6. BETA-BLOCKER [Concomitant]

REACTIONS (18)
  - BACTERAEMIA [None]
  - CARDIAC ARREST [None]
  - DISSEMINATED INTRAVASCULAR COAGULATION [None]
  - GASTROINTESTINAL PERFORATION [None]
  - HEPARIN-INDUCED THROMBOCYTOPENIA [None]
  - HYPOTENSION [None]
  - HYPOTHERMIA [None]
  - LEUKOPENIA [None]
  - MENTAL STATUS CHANGES [None]
  - METABOLIC ACIDOSIS [None]
  - MULTI-ORGAN FAILURE [None]
  - PATHOGEN RESISTANCE [None]
  - PLATELET COUNT DECREASED [None]
  - PSEUDOMONAS INFECTION [None]
  - STAPHYLOCOCCAL INFECTION [None]
  - TOXIC EPIDERMAL NECROLYSIS [None]
  - WOUND [None]
  - WOUND INFECTION BACTERIAL [None]
